FAERS Safety Report 18385136 (Version 2)
Quarter: 2020Q4

REPORT INFORMATION
  Report Type: Spontaneous
  Country: DK (occurrence: DK)
  Receive Date: 20201015
  Receipt Date: 20201117
  Transmission Date: 20210114
  Serious: Yes (Other)
  Sender: FDA-Public Use
  Company Number: DK-BRISTOL-MYERS SQUIBB COMPANY-BMS-2020-084052

PATIENT
  Sex: Female

DRUGS (1)
  1. ELIQUIS [Suspect]
     Active Substance: APIXABAN
     Indication: CEREBROVASCULAR ACCIDENT PROPHYLAXIS
     Dosage: UNK
     Route: 065
     Dates: start: 202009

REACTIONS (6)
  - Gastrooesophageal reflux disease [Unknown]
  - Oesophageal spasm [Unknown]
  - Skin laceration [Unknown]
  - Epigastric discomfort [Unknown]
  - Oesophageal irritation [Unknown]
  - Haemorrhage [Unknown]
